FAERS Safety Report 6938956-5 (Version None)
Quarter: 2010Q3

REPORT INFORMATION
  Report Type: 
  Country: None (occurrence: None)
  Receive Date: 20100824
  Receipt Date: 20100813
  Transmission Date: 20110219
  Serious: Yes (Other)
  Sender: FDA-Public Use
  Company Number: CA-JNJFOC-20100707443

PATIENT
  Sex: Female
  Weight: 72 kg

DRUGS (2)
  1. REMICADE [Suspect]
     Indication: CROHN'S DISEASE
     Route: 042
  2. REMICADE [Suspect]
     Route: 042

REACTIONS (6)
  - ARTHRITIS [None]
  - ASTHENIA [None]
  - PAIN [None]
  - PARAESTHESIA [None]
  - SENSATION OF HEAVINESS [None]
  - SWELLING FACE [None]
